FAERS Safety Report 7680994-1 (Version None)
Quarter: 2011Q3

REPORT INFORMATION
  Report Type: 
  Country: None (occurrence: None)
  Receive Date: 20110812
  Receipt Date: 20110804
  Transmission Date: 20111222
  Serious: Yes (Hospitalization)
  Sender: FDA-Public Use
  Company Number: FR-JNJFOC-20110804477

PATIENT
  Age: 90 Year
  Sex: Female

DRUGS (9)
  1. LEVOTHYROXINE SODIUM [Concomitant]
     Route: 065
  2. DURAGESIC-100 [Suspect]
     Indication: PRODUCT USED FOR UNKNOWN INDICATION
     Route: 062
     Dates: end: 20110405
  3. TRAMADOL HCL [Suspect]
     Indication: PRODUCT USED FOR UNKNOWN INDICATION
     Route: 065
     Dates: start: 20110404
  4. NEXIUM [Concomitant]
     Route: 065
  5. SUFENTANIL CITRATE [Suspect]
     Indication: PRODUCT USED FOR UNKNOWN INDICATION
     Route: 042
     Dates: start: 20110404
  6. PLAVIX [Concomitant]
     Route: 065
  7. NITRODERM [Concomitant]
     Route: 065
  8. LASIX [Concomitant]
     Route: 065
  9. KEPPRA [Concomitant]
     Route: 065

REACTIONS (3)
  - HYPOVENTILATION [None]
  - MIOSIS [None]
  - COMA [None]
